FAERS Safety Report 17499679 (Version 3)
Quarter: 2023Q2

REPORT INFORMATION
  Report Type: Spontaneous
  Country: US (occurrence: None)
  Receive Date: 20200304
  Receipt Date: 20230502
  Transmission Date: 20230722
  Serious: Yes (Other)
  Sender: FDA-Public Use
  Company Number: 2020SE31856

PATIENT
  Sex: Male
  Weight: 9.1 kg

DRUGS (57)
  1. NEXIUM [Suspect]
     Active Substance: ESOMEPRAZOLE MAGNESIUM
     Indication: Gastrooesophageal reflux disease
     Route: 048
     Dates: start: 201401, end: 201801
  2. NEXIUM [Suspect]
     Active Substance: ESOMEPRAZOLE MAGNESIUM
     Indication: Gastrooesophageal reflux disease
     Route: 048
     Dates: start: 2014, end: 2018
  3. NEXIUM 24HR [Suspect]
     Active Substance: ESOMEPRAZOLE MAGNESIUM
     Indication: Gastrooesophageal reflux disease
     Route: 048
     Dates: start: 201401, end: 201801
  4. NEXIUM 24HR [Suspect]
     Active Substance: ESOMEPRAZOLE MAGNESIUM
     Indication: Gastrooesophageal reflux disease
     Route: 048
     Dates: start: 2014, end: 2018
  5. OMEPRAZOLE [Suspect]
     Active Substance: OMEPRAZOLE
     Indication: Gastrooesophageal reflux disease
     Dosage: GENERIC
  6. PRILOSEC OTC [Suspect]
     Active Substance: OMEPRAZOLE MAGNESIUM
     Indication: Gastrooesophageal reflux disease
     Route: 048
     Dates: start: 201401, end: 201801
  7. PRILOSEC OTC [Suspect]
     Active Substance: OMEPRAZOLE MAGNESIUM
     Indication: Gastrooesophageal reflux disease
     Route: 048
     Dates: start: 2003, end: 2018
  8. PANTOPRAZOLE [Suspect]
     Active Substance: PANTOPRAZOLE
     Indication: Gastrooesophageal reflux disease
     Dates: start: 2018
  9. LEVEMIR [Concomitant]
     Active Substance: INSULIN DETEMIR
     Indication: Diabetes mellitus
     Dates: start: 201908
  10. NOVOLOG [Concomitant]
     Active Substance: INSULIN ASPART
     Indication: Diabetes mellitus
     Dates: start: 201804
  11. ZOLOFT [Concomitant]
     Active Substance: SERTRALINE HYDROCHLORIDE
     Indication: Depression
     Dates: start: 201804
  12. WARFARIN [Concomitant]
     Active Substance: WARFARIN
     Indication: Blood viscosity abnormal
     Dates: start: 201805
  13. LOSARTAN [Concomitant]
     Active Substance: LOSARTAN
     Indication: Hypertension
     Dates: start: 201501
  14. PRAVASTATIN [Concomitant]
     Active Substance: PRAVASTATIN
     Indication: Blood cholesterol increased
     Dates: start: 201804
  15. VASCEPA [Concomitant]
     Active Substance: ICOSAPENT ETHYL
     Indication: Blood triglycerides increased
     Dates: start: 202004
  16. OMEGA 3 [Concomitant]
     Active Substance: CAPSAICIN
     Indication: Cardiac disorder
     Dates: start: 201501
  17. FOLIC ACID [Concomitant]
     Active Substance: FOLIC ACID
     Indication: Heart alternation
     Dates: start: 201501
  18. TUMS [Concomitant]
     Active Substance: CALCIUM CARBONATE
     Dates: start: 200106, end: 200306
  19. MYLANTA [Concomitant]
     Active Substance: ALUMINUM HYDROXIDE\DIMETHICONE\MAGNESIUM HYDROXIDE
     Dates: start: 200106, end: 200306
  20. PEPTO-BISMOL [Concomitant]
     Active Substance: BISMUTH SUBSALICYLATE
     Dates: start: 200106, end: 200306
  21. SYMBICORT [Concomitant]
     Active Substance: BUDESONIDE\FORMOTEROL FUMARATE DIHYDRATE
  22. MONTELUKAST [Concomitant]
     Active Substance: MONTELUKAST SODIUM
  23. SULFAMETHOXAZOLE\TRIMETHOPRIM [Concomitant]
     Active Substance: SULFAMETHOXAZOLE\TRIMETHOPRIM
  24. VENTOLIN [Concomitant]
     Active Substance: ALBUTEROL SULFATE
  25. DYMISTA [Concomitant]
     Active Substance: AZELASTINE HYDROCHLORIDE\FLUTICASONE PROPIONATE
  26. CETIRIZINE HYDROCHLORIDE [Concomitant]
     Active Substance: CETIRIZINE HYDROCHLORIDE
  27. IPRATROPIUM [Concomitant]
     Active Substance: IPRATROPIUM
  28. PROAIR HFA [Concomitant]
     Active Substance: ALBUTEROL SULFATE
  29. AZELASTINE [Concomitant]
     Active Substance: AZELASTINE
  30. METOPROLOL [Concomitant]
     Active Substance: METOPROLOL
  31. NIFEDIPINE [Concomitant]
     Active Substance: NIFEDIPINE
  32. SODIUM BICARBONATE [Concomitant]
     Active Substance: SODIUM BICARBONATE
  33. SERTRALINE [Concomitant]
     Active Substance: SERTRALINE HYDROCHLORIDE
  34. BUPROPION [Concomitant]
     Active Substance: BUPROPION
  35. ZETIA [Concomitant]
     Active Substance: EZETIMIBE
  36. HYDRALAZINE [Concomitant]
     Active Substance: HYDRALAZINE HYDROCHLORIDE
  37. CLOPIDOGREL [Concomitant]
     Active Substance: CLOPIDOGREL BISULFATE
  38. ALPRAZOLAM [Concomitant]
     Active Substance: ALPRAZOLAM
  39. LANTUS [Concomitant]
     Active Substance: INSULIN GLARGINE
  40. CEPHALEXIN [Concomitant]
     Active Substance: CEPHALEXIN
  41. AXIRON [Concomitant]
     Active Substance: TESTOSTERONE
  42. RIFAMPIN [Concomitant]
     Active Substance: RIFAMPIN
  43. CLOBETASOL [Concomitant]
     Active Substance: CLOBETASOL
  44. FERROUS SULFATE [Concomitant]
     Active Substance: FERROUS SULFATE
  45. PREDNISONE [Concomitant]
     Active Substance: PREDNISONE
  46. EZETIMIBE [Concomitant]
     Active Substance: EZETIMIBE
  47. CARVEDILOL [Concomitant]
     Active Substance: CARVEDILOL
  48. KETOCONAZOLE [Concomitant]
     Active Substance: KETOCONAZOLE
  49. REGRANEX [Concomitant]
     Active Substance: BECAPLERMIN
  50. GATIFLOXACIN [Concomitant]
     Active Substance: GATIFLOXACIN
  51. ALLOPURINOL [Concomitant]
     Active Substance: ALLOPURINOL
  52. COLLAGENASE SANTYL [Concomitant]
     Active Substance: COLLAGENASE CLOSTRIDIUM HISTOLYTICUM
  53. AMOXICILLIN\CLAVULANATE POTASSIUM [Concomitant]
     Active Substance: AMOXICILLIN\CLAVULANATE POTASSIUM
  54. SILVER SULFADIAZINE [Concomitant]
     Active Substance: SILVER SULFADIAZINE
  55. AMMONIUM LACTATE [Concomitant]
     Active Substance: AMMONIUM LACTATE
  56. LACTULOSE [Concomitant]
     Active Substance: LACTULOSE
  57. WARFARIN SODIUM [Concomitant]
     Active Substance: WARFARIN SODIUM

REACTIONS (4)
  - Chronic kidney disease [Not Recovered/Not Resolved]
  - End stage renal disease [Unknown]
  - Acute kidney injury [Not Recovered/Not Resolved]
  - Gastrooesophageal reflux disease [Not Recovered/Not Resolved]
